FAERS Safety Report 17338569 (Version 2)
Quarter: 2020Q1

REPORT INFORMATION
  Report Type: Spontaneous
  Country: BG (occurrence: BG)
  Receive Date: 20200129
  Receipt Date: 20200217
  Transmission Date: 20200409
  Serious: Yes (Hospitalization)
  Sender: FDA-Public Use
  Company Number: BG-ROCHE-2523958

PATIENT
  Age: 60 Year
  Sex: Male

DRUGS (5)
  1. BLOKBIS [Concomitant]
     Indication: HEART RATE INCREASED
     Dosage: 0.5 TABLET
     Route: 048
  2. ASPIRIN [ACETYLSALICYLIC ACID] [Concomitant]
     Active Substance: ASPIRIN
     Route: 048
  3. TAMIFLU [Suspect]
     Active Substance: OSELTAMIVIR PHOSPHATE
     Indication: VIRAL INFECTION
     Route: 048
     Dates: start: 20200108, end: 20200110
  4. ZOFEN [ZOFENOPRIL] [Concomitant]
     Indication: HYPERTENSION
     Dosage: 30MG/12.5MG
     Route: 048
  5. BRILIQUE [Concomitant]
     Active Substance: TICAGRELOR
     Dosage: 0.5 TABLET
     Route: 048

REACTIONS (13)
  - Pyrexia [Recovered/Resolved]
  - Nausea [Recovered/Resolved]
  - Decreased appetite [Recovered/Resolved]
  - Urinary tract inflammation [Recovering/Resolving]
  - Nephritis [Recovering/Resolving]
  - Constipation [Recovered/Resolved]
  - Vomiting [Recovered/Resolved]
  - Abdominal discomfort [Recovered/Resolved]
  - Nephritis [Recovering/Resolving]
  - Depression [Recovered/Resolved]
  - Vertigo [Recovered/Resolved]
  - Dizziness [Recovered/Resolved]
  - Eructation [Recovered/Resolved]

NARRATIVE: CASE EVENT DATE: 20200108
